FAERS Safety Report 8513986 (Version 3)
Quarter: 2013Q1

REPORT INFORMATION
  Report Type: Spontaneous
  Country: JP (occurrence: JP)
  Receive Date: 20120416
  Receipt Date: 20130214
  Transmission Date: 20140127
  Serious: Yes (Death, Life-Threatening, Hospitalization)
  Sender: FDA-Public Use
  Company Number: JP-ROCHE-1056893

PATIENT
  Age: 81 Year
  Sex: Female

DRUGS (1)
  1. ACTEMRA [Suspect]
     Indication: RHEUMATOID ARTHRITIS
     Route: 041
     Dates: start: 20100129, end: 20110204

REACTIONS (4)
  - Pneumonia bacterial [Fatal]
  - Shock haemorrhagic [Recovered/Resolved]
  - Cardiac arrest [Recovered/Resolved]
  - Pneumonia bacterial [Recovering/Resolving]
